FAERS Safety Report 7782418-2 (Version None)
Quarter: 2011Q3

REPORT INFORMATION
  Report Type: 
  Country: None (occurrence: None)
  Receive Date: 20110928
  Receipt Date: 20110919
  Transmission Date: 20111222
  Serious: Yes (Hospitalization, Other)
  Sender: FDA-Public Use
  Company Number: AR-AMGEN-ARGSP2011048772

PATIENT
  Age: 68 Year
  Sex: Male

DRUGS (1)
  1. ENBREL [Suspect]
     Indication: RHEUMATOID ARTHRITIS
     Dosage: 50 MG, WEEKLY
     Dates: start: 20080802

REACTIONS (4)
  - ARRHYTHMIA [None]
  - BRAIN INJURY [None]
  - OXYGEN SATURATION DECREASED [None]
  - GENERAL PHYSICAL HEALTH DETERIORATION [None]
